FAERS Safety Report 17682020 (Version 3)
Quarter: 2025Q3

REPORT INFORMATION
  Report Type: Spontaneous
  Country: US (occurrence: US)
  Receive Date: 20200418
  Receipt Date: 20250703
  Transmission Date: 20251021
  Serious: Yes (Hospitalization, Other)
  Sender: AUROBINDO
  Company Number: US-MLMSERVICE-20200401-2239316-1

PATIENT
  Age: 43 Year
  Sex: Male
  Weight: 96.62 kg

DRUGS (10)
  1. DEXAMETHASONE [Suspect]
     Active Substance: DEXAMETHASONE
     Indication: Mantle cell lymphoma
     Route: 065
     Dates: start: 20090914, end: 20100215
  2. METHOTREXATE [Suspect]
     Active Substance: METHOTREXATE
     Indication: Mantle cell lymphoma
     Route: 065
     Dates: start: 20090914, end: 20100215
  3. VINCRISTINE SULFATE [Suspect]
     Active Substance: VINCRISTINE SULFATE
     Indication: Mantle cell lymphoma
     Route: 065
     Dates: start: 20090914, end: 20100215
  4. BUSULFAN [Suspect]
     Active Substance: BUSULFAN
     Indication: Mantle cell lymphoma
     Route: 065
     Dates: start: 2010
  5. CYTOXAN [Suspect]
     Active Substance: CYCLOPHOSPHAMIDE
     Indication: Product used for unknown indication
     Route: 065
     Dates: start: 2010
  6. DOXORUBICIN [Suspect]
     Active Substance: DOXORUBICIN
     Indication: Mantle cell lymphoma
     Route: 065
     Dates: start: 20090914, end: 20100215
  7. CYTARABINE [Suspect]
     Active Substance: CYTARABINE
     Indication: Mantle cell lymphoma
     Route: 065
     Dates: start: 20090914, end: 20100215
  8. ETOPOSIDE [Suspect]
     Active Substance: ETOPOSIDE
     Indication: Stem cell transplant
     Route: 065
     Dates: start: 2010
  9. CYCLOPHOSPHAMIDE [Suspect]
     Active Substance: CYCLOPHOSPHAMIDE
     Indication: Mantle cell lymphoma
     Route: 065
     Dates: start: 20090914, end: 20100215
  10. CYCLOPHOSPHAMIDE [Suspect]
     Active Substance: CYCLOPHOSPHAMIDE

REACTIONS (1)
  - Sweat gland tumour [Recovered/Resolved]

NARRATIVE: CASE EVENT DATE: 20120101
